FAERS Safety Report 6646653-9 (Version None)
Quarter: 2010Q1

REPORT INFORMATION
  Report Type: 
  Country: None (occurrence: None)
  Receive Date: 20100323
  Receipt Date: 20100310
  Transmission Date: 20100710
  Serious: Yes (Other)
  Sender: FDA-Public Use
  Company Number: NO-JNJFOC-20100303177

PATIENT
  Sex: Female

DRUGS (6)
  1. TOPAMAX [Suspect]
     Indication: EPILEPSY
     Route: 065
  2. TOPAMAX [Suspect]
     Route: 065
  3. TOPAMAX [Suspect]
     Route: 065
  4. LEVETIRACETAM [Suspect]
     Indication: EPILEPSY
     Route: 065
  5. LEVETIRACETAM [Suspect]
     Route: 065
  6. LEVETIRACETAM [Suspect]
     Route: 065

REACTIONS (5)
  - ANTICONVULSANT DRUG LEVEL DECREASED [None]
  - COMPLEX PARTIAL SEIZURES [None]
  - DRUG EXPOSURE DURING PREGNANCY [None]
  - GRAND MAL CONVULSION [None]
  - STATUS EPILEPTICUS [None]
